FAERS Safety Report 13338803 (Version 2)
Quarter: 2017Q2

REPORT INFORMATION
  Report Type: Spontaneous
  Country: PT (occurrence: PT)
  Receive Date: 20170315
  Receipt Date: 20170405
  Transmission Date: 20170830
  Serious: Yes (Hospitalization, Other)
  Sender: FDA-Public Use
  Company Number: PT-CELGENEUS-PRT-2015063592

PATIENT
  Age: 84 Year
  Sex: Male

DRUGS (2)
  1. THALIDOMIDE CELGENE [Suspect]
     Active Substance: THALIDOMIDE
     Indication: PLASMA CELL MYELOMA
     Route: 048
  2. ERYTHROPOIETIN [Concomitant]
     Active Substance: ERYTHROPOIETIN
     Indication: PRODUCT USED FOR UNKNOWN INDICATION
     Route: 058

REACTIONS (5)
  - Abdominal wall haematoma [Unknown]
  - Haematoma [Unknown]
  - Acquired haemophilia with anti FVIII, XI, or XIII [Recovered/Resolved]
  - Cellulitis [Unknown]
  - Ecchymosis [Unknown]

NARRATIVE: CASE EVENT DATE: 201407
